FAERS Safety Report 15668977 (Version 3)
Quarter: 2018Q4

REPORT INFORMATION
  Report Type: Spontaneous
  Country: US (occurrence: US)
  Receive Date: 20181129
  Receipt Date: 20181213
  Transmission Date: 20190205
  Serious: Yes (Hospitalization, Other)
  Sender: FDA-Public Use
  Company Number: US-AMGEN-USASP2018169614

PATIENT
  Age: 84 Year
  Sex: Male

DRUGS (16)
  1. MARINOL [Concomitant]
     Active Substance: DRONABINOL
     Dosage: 2.5 MG, BID
  2. MAGNESIUM OXIDE. [Concomitant]
     Active Substance: MAGNESIUM OXIDE
     Dosage: 400 MG, 3 TIMES/WK
  3. K-PHOS NEUTRAL [Concomitant]
     Active Substance: POTASSIUM PHOSPHATE\SODIUM PHOSPHATE
     Dosage: 250 MG, BID
  4. ARICEPT [Concomitant]
     Active Substance: DONEPEZIL HYDROCHLORIDE
     Dosage: 10 MG, QHS
  5. ASPRIN [Concomitant]
     Active Substance: ASPIRIN
     Dosage: 81 MG, QD
  6. QUININE SULFATE. [Concomitant]
     Active Substance: QUININE SULFATE
     Dosage: 324 MG, UNK (BEFORE DIALYSIS)
  7. LEXAPRO [Concomitant]
     Active Substance: ESCITALOPRAM OXALATE
     Dosage: 5 MG, QHS
  8. NEPRO [Concomitant]
     Active Substance: DIETARY SUPPLEMENT
     Dosage: UNK UNK, BID
  9. SENSIPAR [Suspect]
     Active Substance: CINACALCET HYDROCHLORIDE
     Indication: NEPHROGENIC ANAEMIA
     Dosage: 30 MG, QD (WITH DINNER)
     Route: 048
     Dates: start: 20180315
  10. COREG [Concomitant]
     Active Substance: CARVEDILOL
     Dosage: 6.25 MG, BID
  11. LACTULOSE. [Concomitant]
     Active Substance: LACTULOSE
     Dosage: 30 ML, BID
  12. EPOGEN [Suspect]
     Active Substance: ERYTHROPOIETIN
     Indication: NEPHROGENIC ANAEMIA
     Dosage: 6000 UNIT, UNK (EVERY DIALYSIS TREATMENT)
     Route: 058
     Dates: end: 201403
  13. REMERON [Concomitant]
     Active Substance: MIRTAZAPINE
     Dosage: 15 MG, QHS
  14. PANTOPRAZOLE [Concomitant]
     Active Substance: PANTOPRAZOLE
     Dosage: 40 MG, QD
  15. RIFAXIMIN. [Concomitant]
     Active Substance: RIFAXIMIN
     Dosage: 530 MG, BID
  16. VITAMIN D3 [Concomitant]
     Active Substance: CHOLECALCIFEROL
     Dosage: 1000 UNIT, QD

REACTIONS (4)
  - Fatigue [Not Recovered/Not Resolved]
  - Off label use [Unknown]
  - Anti-erythropoietin antibody positive [Unknown]
  - Anaemia [Recovered/Resolved]

NARRATIVE: CASE EVENT DATE: 201403
